FAERS Safety Report 17468606 (Version 1)
Quarter: 2020Q1

REPORT INFORMATION
  Report Type: Spontaneous
  Country: US (occurrence: US)
  Receive Date: 20200227
  Receipt Date: 20200227
  Transmission Date: 20200409
  Serious: No
  Sender: FDA-Public Use
  Company Number: None

PATIENT
  Age: 62 Year
  Sex: Female
  Weight: 53.98 kg

DRUGS (1)
  1. ARISTADA [Suspect]
     Active Substance: ARIPIPRAZOLE LAUROXIL
     Indication: SCHIZOPHRENIA
     Dosage: ?          OTHER FREQUENCY:MONTHLY;?
     Route: 030
     Dates: start: 20200227

REACTIONS (2)
  - Needle issue [None]
  - Discomfort [None]

NARRATIVE: CASE EVENT DATE: 20200227
